FAERS Safety Report 22035989 (Version 1)
Quarter: 2023Q1

REPORT INFORMATION
  Report Type: Spontaneous
  Country: US (occurrence: FR)
  Receive Date: 20230224
  Receipt Date: 20230224
  Transmission Date: 20230417
  Serious: Yes (Hospitalization, Other)
  Sender: FDA-Public Use
  Company Number: US-ARBOR PHARMACEUTICALS, LLC-FR-2023ARB000328

PATIENT
  Age: 75 Year
  Sex: Male
  Weight: 69 kg

DRUGS (4)
  1. TRIPTODUR [Suspect]
     Active Substance: TRIPTORELIN
     Indication: Prostate cancer metastatic
     Dosage: 1 DOSAGE FORM
     Route: 058
     Dates: start: 20221226
  2. TRIPTODUR [Suspect]
     Active Substance: TRIPTORELIN
  3. TRIPTODUR [Suspect]
     Active Substance: TRIPTORELIN
  4. XTANDI [Suspect]
     Active Substance: ENZALUTAMIDE
     Indication: Prostate cancer metastatic
     Dosage: 4CP / JR 160 MG, 1 DAY
     Route: 048
     Dates: start: 20221226, end: 20230117

REACTIONS (4)
  - Nervous system disorder [Recovering/Resolving]
  - Myocarditis [Recovering/Resolving]
  - Disseminated intravascular coagulation [Recovering/Resolving]
  - Ischaemic stroke [Recovering/Resolving]

NARRATIVE: CASE EVENT DATE: 20221229
